FAERS Safety Report 16756125 (Version 1)
Quarter: 2019Q3

REPORT INFORMATION
  Report Type: Report from Study
  Country: US (occurrence: US)
  Receive Date: 20190829
  Receipt Date: 20190829
  Transmission Date: 20191005
  Serious: Yes (Hospitalization)
  Sender: FDA-Public Use
  Company Number: US-TEVA-2019-US-1100900

PATIENT
  Age: 56 Year
  Sex: Male
  Weight: 87.5 kg

DRUGS (11)
  1. PROCHLORPERAZINE. [Concomitant]
     Active Substance: PROCHLORPERAZINE
     Indication: NAUSEA
     Route: 042
     Dates: start: 20190702, end: 20190707
  2. SYNRIBO [Suspect]
     Active Substance: OMACETAXINE MEPESUCCINATE
     Indication: MYELODYSPLASTIC SYNDROME
     Dosage: 1 MG/M2 DAILY; DAYS 1-7
     Dates: start: 20190702, end: 20190708
  3. MELATONIN [Concomitant]
     Active Substance: MELATONIN
     Dosage: 6 MILLIGRAM DAILY;
     Route: 048
     Dates: start: 20190712, end: 20190723
  4. HYDROXYUREA. [Concomitant]
     Active Substance: HYDROXYUREA
     Indication: MYELODYSPLASTIC SYNDROME
     Dosage: 500 MILLIGRAM DAILY;
     Route: 048
     Dates: start: 20190620, end: 20190708
  5. ONDANSETRON [Concomitant]
     Active Substance: ONDANSETRON
     Indication: NAUSEA
     Dosage: 24 MILLIGRAM DAILY;
     Route: 048
     Dates: start: 20190625
  6. VIDAZA [Suspect]
     Active Substance: AZACITIDINE
     Indication: MYELODYSPLASTIC SYNDROME
     Dosage: 75 MG/M2 DAILY; DAYS 1-7
     Route: 042
     Dates: start: 20190702, end: 20190708
  7. MELATONIN [Concomitant]
     Active Substance: MELATONIN
     Dosage: 3 MILLIGRAM DAILY;
     Route: 048
     Dates: start: 20190702
  8. ACYCLOVIR. [Concomitant]
     Active Substance: ACYCLOVIR
     Indication: ANTIVIRAL PROPHYLAXIS
     Dosage: 800 MILLICURIES DAILY;
     Route: 048
     Dates: start: 20190620
  9. NS BOLUS [Concomitant]
     Indication: DEHYDRATION
     Route: 040
     Dates: start: 20190623
  10. LEVOFLOXACIN. [Concomitant]
     Active Substance: LEVOFLOXACIN
     Indication: ANTIBIOTIC PROPHYLAXIS
     Dosage: 500 MILLIGRAM DAILY;
     Route: 048
     Dates: start: 20190620, end: 20190809
  11. TRAMADOL. [Concomitant]
     Active Substance: TRAMADOL
     Indication: HEADACHE
     Dosage: 200 MILLIGRAM DAILY;
     Route: 048
     Dates: start: 20190702, end: 20190709

REACTIONS (1)
  - Gout [Unknown]

NARRATIVE: CASE EVENT DATE: 20190722
